FAERS Safety Report 4515936-0 (Version None)
Quarter: 2004Q4

REPORT INFORMATION
  Report Type: 
  Country: None (occurrence: None)
  Receive Date: 20041201
  Receipt Date: 20041116
  Transmission Date: 20050328
  Serious: Yes (Life-Threatening, Hospitalization, Other)
  Sender: FDA-Public Use
  Company Number: 2004S1003460

PATIENT
  Age: 63 Year
  Sex: Male

DRUGS (6)
  1. METOPROLOL TARTRATE [Suspect]
     Indication: HEART RATE
     Dosage: 100MG QD, ORAL
     Route: 048
  2. ASPIRIN [Concomitant]
  3. CIPROFLOXACIN [Concomitant]
  4. LISINOPRIL [Concomitant]
  5. VIATMINS [Concomitant]
  6. PANTOPRAZOLE [Concomitant]

REACTIONS (3)
  - DRUG EFFECT DECREASED [None]
  - PHARMACEUTICAL PRODUCT COMPLAINT [None]
  - VENTRICULAR TACHYCARDIA [None]
